FAERS Safety Report 9479501 (Version 2)
Quarter: 2013Q3

REPORT INFORMATION
  Report Type: Report from Study
  Country: CA (occurrence: CA)
  Receive Date: 20130827
  Receipt Date: 20130827
  Transmission Date: 20140515
  Serious: Yes (Other)
  Sender: FDA-Public Use
  Company Number: CA-ABBOTT-12P-028-0975234-00

PATIENT
  Age: 84 Year
  Sex: Male
  Weight: 88.53 kg

DRUGS (1)
  1. LUPRON DEPOT 30 MG [Suspect]
     Indication: PROSTATE CANCER
     Dates: start: 20100508

REACTIONS (1)
  - Aortic aneurysm [Unknown]
